FAERS Safety Report 4508956-3 (Version None)
Quarter: 2004Q4

REPORT INFORMATION
  Report Type: 
  Country: None (occurrence: None)
  Receive Date: 20041122
  Receipt Date: 20041112
  Transmission Date: 20050328
  Serious: Yes (Hospitalization)
  Sender: FDA-Public Use
  Company Number: STA-AE-04-MTX-570

PATIENT
  Age: 69 Year
  Sex: Male

DRUGS (22)
  1. RHEUMATREX [Suspect]
     Indication: RHEUMATOID ARTHRITIS
     Dosage: 6 MG 1X PER 1 WK, ORAL
     Route: 048
     Dates: start: 20030805
  2. PREDNISOLONE [Suspect]
     Indication: RHEUMATOID ARTHRITIS
     Dosage: 4 MG/DAY TAB, ORAL
     Route: 048
     Dates: start: 20040101
  3. REMICADE [Suspect]
     Indication: RHEUMATOID ARTHRITIS
     Dosage: 3 MG/KG, 1X PER 1 DAY, INTRAVENOUS
     Route: 042
     Dates: start: 20040129, end: 20040129
  4. REMICADE [Suspect]
     Indication: RHEUMATOID ARTHRITIS
     Dosage: 3 MG/KG, 1X PER 1 DAY, INTRAVENOUS
     Route: 042
     Dates: start: 20040212, end: 20040212
  5. REMICADE [Suspect]
     Indication: RHEUMATOID ARTHRITIS
     Dosage: 3 MG/KG, 1X PER 1 DAY, INTRAVENOUS
     Route: 042
     Dates: start: 20040311, end: 20040311
  6. REMICADE [Suspect]
     Indication: RHEUMATOID ARTHRITIS
     Dosage: 3 MG/KG, 1X PER 1 DAY, INTRAVENOUS
     Route: 042
     Dates: start: 20040506, end: 20040506
  7. SHIOSOL (SODIUM AUROTHIOMALATE) [Concomitant]
  8. METALCAPTASE (PENICILLAMINE) [Concomitant]
  9. VOLTAREN [Concomitant]
  10. VOLTAREN [Concomitant]
  11. MARZULENE (SODIUM GUALENATE) [Concomitant]
  12. METHYLCOBAL (MECOBALAMIN) [Concomitant]
  13. HALCION [Concomitant]
  14. PYDOXAL (PYRIDOXAL PHOSPHATE) [Concomitant]
  15. EPADEL (ETHYL ICOSAPENTATE) [Concomitant]
  16. GASTROM (ECABET MONOSODIUM) [Concomitant]
  17. GASTER (FAMOTIDINE) [Concomitant]
  18. HYALURONIDASE [Concomitant]
  19. GENTACIN (GENTAMICIN SULFATE) [Concomitant]
  20. SANCOBA (CYANOCOBALAMIN) [Concomitant]
  21. RESTAMIN (DIPHENHYDRAMINE) [Concomitant]
  22. PYRINAZIN (PARACETAMOL) [Concomitant]

REACTIONS (1)
  - PNEUMONIA BACTERIAL [None]
